FAERS Safety Report 6039197-9 (Version None)
Quarter: 2009Q1

REPORT INFORMATION
  Report Type: 
  Country: None (occurrence: None)
  Receive Date: 20090115
  Receipt Date: 20081129
  Transmission Date: 20090719
  Serious: Yes (Other)
  Sender: FDA-Public Use
  Company Number: FR-PFIZER INC-2008087450

PATIENT

DRUGS (1)
  1. SUTENT [Suspect]

REACTIONS (2)
  - DYSARTHRIA [None]
  - DYSPHAGIA [None]
